FAERS Safety Report 13952727 (Version 1)
Quarter: 2017Q3

REPORT INFORMATION
  Report Type: Spontaneous
  Country: US (occurrence: US)
  Receive Date: 20170911
  Receipt Date: 20170911
  Transmission Date: 20171128
  Serious: No
  Sender: FDA-Public Use
  Company Number: US-TEVA-774430USA

PATIENT

DRUGS (1)
  1. FENTANYL. [Suspect]
     Active Substance: FENTANYL
     Indication: PAIN
     Dosage: (BEEN ON PATCH SINCE LAST 2 YEARS)
     Route: 065
     Dates: start: 2015

REACTIONS (2)
  - Pain [Not Recovered/Not Resolved]
  - Product adhesion issue [Unknown]
